FAERS Safety Report 4795234-0 (Version None)
Quarter: 2005Q3

REPORT INFORMATION
  Report Type: 
  Country: None (occurrence: None)
  Receive Date: 20050916
  Receipt Date: 20041119
  Transmission Date: 20060218
  Serious: Yes (Hospitalization)
  Sender: FDA-Public Use
  Company Number: US-JNJFOC-20040809004

PATIENT
  Age: 40 Year
  Sex: Female

DRUGS (6)
  1. TOPAMAX [Suspect]
     Indication: MIGRAINE
     Dosage: 75 MG, 1 IN 1 DAY ORAL
     Route: 048
     Dates: end: 20040820
  2. VIOXX [Concomitant]
  3. PREDNISONE [Concomitant]
  4. DILAUDID [Concomitant]
  5. FLEXERIL [Concomitant]
  6. NEURONTIN [Concomitant]

REACTIONS (3)
  - MIGRAINE [None]
  - MUSCLE SPASMS [None]
  - TREMOR [None]
